FAERS Safety Report 5843541-2 (Version None)
Quarter: 2008Q3

REPORT INFORMATION
  Report Type: 
  Country: None (occurrence: None)
  Receive Date: 20080808
  Receipt Date: 20080721
  Transmission Date: 20090109
  Serious: Yes (Hospitalization)
  Sender: FDA-Public Use
  Company Number: 1000000216

PATIENT
  Age: 55 Year
  Sex: Female

DRUGS (6)
  1. PROPRANOLOL [Suspect]
     Indication: VARICES OESOPHAGEAL
     Dosage: 160 MG
  2. VENLAFAXINE HCL [Suspect]
     Indication: DEPRESSION
     Dosage: 75 MG
  3. ALENDRONIC ACID [Concomitant]
  4. CALCIUM [Concomitant]
  5. COLECALCIFEROL [Concomitant]
  6. PANTOPRAZOLE [Concomitant]

REACTIONS (5)
  - DRUG INTERACTION [None]
  - OEDEMA PERIPHERAL [None]
  - OESOPHAGEAL VARICES HAEMORRHAGE [None]
  - PNEUMONIA MYCOPLASMAL [None]
  - RESPIRATORY FAILURE [None]
